FAERS Safety Report 14610382 (Version 6)
Quarter: 2018Q3

REPORT INFORMATION
  Report Type: Spontaneous
  Country: DE (occurrence: DE)
  Receive Date: 20180307
  Receipt Date: 20180807
  Transmission Date: 20181010
  Serious: Yes (Other)
  Sender: FDA-Public Use
  Company Number: DE-TEVA-2018-DE-864508

PATIENT
  Sex: Female
  Weight: 41 kg

DRUGS (5)
  1. ONCOFOLIC [Concomitant]
     Active Substance: FOLATE SODIUM
     Route: 042
     Dates: start: 20160426
  2. ONCOFOLIC [Concomitant]
     Active Substance: FOLATE SODIUM
     Indication: ADENOCARCINOMA OF COLON
     Dosage: LAST ADMINISTRATION BEFORE AE ONSET: 09?AUG?2016
     Route: 042
     Dates: start: 20160509, end: 20161010
  3. GRANISETRON [Concomitant]
     Active Substance: GRANISETRON
     Indication: PREMEDICATION
     Dosage: 30 MIN BEFORE
  4. OXALIPLATIN INJECTION 50MG/10 ML+100MG/20ML [Suspect]
     Active Substance: OXALIPLATIN
     Indication: ADENOCARCINOMA OF COLON
     Dosage: LAST ADMINISTRATION BEFORE AE ONSET: 08?AUG?2016
     Route: 042
     Dates: start: 20160425, end: 20161010
  5. 5?FU MEDAC [Concomitant]
     Active Substance: FLUOROURACIL
     Indication: ADENOCARCINOMA OF COLON
     Dosage: LAST ADMINISTRATION BEFORE AE ONSET: 08?AUG?2016
     Route: 042
     Dates: start: 20160509, end: 20161010

REACTIONS (2)
  - Thrombotic thrombocytopenic purpura [Recovered/Resolved]
  - Leukocytosis [Recovered/Resolved]

NARRATIVE: CASE EVENT DATE: 20160509
